FAERS Safety Report 6816176-2 (Version None)
Quarter: 2010Q3

REPORT INFORMATION
  Report Type: 
  Country: None (occurrence: None)
  Receive Date: 20100702
  Receipt Date: 20100702
  Transmission Date: 20110219
  Serious: Yes (Hospitalization)
  Sender: FDA-Public Use
  Company Number: None

PATIENT
  Age: 34 Year
  Sex: Female
  Weight: 51.7101 kg

DRUGS (1)
  1. GAMMAGARD LIQUID [Suspect]
     Indication: MYASTHENIA GRAVIS
     Dosage: 50 GRAMS DAILY IV DRIP
     Route: 041
     Dates: start: 20100622, end: 20100626

REACTIONS (2)
  - INFUSION RELATED REACTION [None]
  - MENINGITIS ASEPTIC [None]
